FAERS Safety Report 11641566 (Version 2)
Quarter: 2016Q3

REPORT INFORMATION
  Report Type: Report from Study
  Country: ZA (occurrence: ZA)
  Receive Date: 20151019
  Receipt Date: 20160913
  Transmission Date: 20161109
  Serious: Yes (Death, Other)
  Sender: FDA-Public Use
  Company Number: ZA-GILEAD-2015-0177198

PATIENT
  Age: 62 Year
  Sex: Male
  Weight: 42.6 kg

DRUGS (1)
  1. EFAVIRENZ/EMTRICITABINE/TENOFOVIR DISOPROXIL FUMARATE [Suspect]
     Active Substance: EFAVIRENZ\EMTRICITABINE\TENOFOVIR DISOPROXIL FUMARATE
     Indication: HIV INFECTION
     Dosage: 1 DF, QD
     Route: 048
     Dates: start: 20150612

REACTIONS (1)
  - Death [Fatal]

NARRATIVE: CASE EVENT DATE: 20150926
